FAERS Safety Report 5407399-8 (Version None)
Quarter: 2007Q3

REPORT INFORMATION
  Report Type: 
  Country: None (occurrence: None)
  Receive Date: 20070807
  Receipt Date: 20070801
  Transmission Date: 20080115
  Serious: Yes (Death, Life-Threatening, Hospitalization, Other)
  Sender: FDA-Public Use
  Company Number: JP-ELI_LILLY_AND_COMPANY-JP200708000581

PATIENT
  Age: 53 Year
  Sex: Female

DRUGS (1)
  1. GEMZAR [Suspect]
     Indication: LUNG ADENOCARCINOMA STAGE II
     Route: 042
     Dates: start: 20030101

REACTIONS (6)
  - ACUTE RESPIRATORY DISTRESS SYNDROME [None]
  - GASTROINTESTINAL HAEMORRHAGE [None]
  - HEPATIC FAILURE [None]
  - INTERSTITIAL LUNG DISEASE [None]
  - MULTI-ORGAN FAILURE [None]
  - RENAL FAILURE [None]
